FAERS Safety Report 6038512-X (Version None)
Quarter: 2009Q1

REPORT INFORMATION
  Report Type: 
  Country: None (occurrence: None)
  Receive Date: 20090115
  Receipt Date: 20080616
  Transmission Date: 20090719
  Serious: No
  Sender: FDA-Public Use
  Company Number: US-KINGPHARMUSA00001-K200800721

PATIENT
  Age: 62 Year
  Sex: Female

DRUGS (1)
  1. EPIPEN [Suspect]
     Indication: URTICARIA CHRONIC
     Dosage: UNK, SINGLE, INJECTION
     Dates: start: 20080616, end: 20080616

REACTIONS (2)
  - ACCIDENTAL EXPOSURE [None]
  - EXPIRED DRUG ADMINISTERED [None]
